FAERS Safety Report 20814549 (Version 1)
Quarter: 2022Q2

REPORT INFORMATION
  Report Type: Spontaneous
  Country: US (occurrence: US)
  Receive Date: 20220511
  Receipt Date: 20220511
  Transmission Date: 20220721
  Serious: Yes (Other)
  Sender: FDA-Public Use
  Company Number: US-TEVA-2022-US-2037187

PATIENT
  Age: 83 Year
  Sex: Female

DRUGS (3)
  1. CLONIDINE HYDROCHLORIDE [Suspect]
     Active Substance: CLONIDINE HYDROCHLORIDE
     Indication: Hypertension
     Dosage: DOSE: 0.1 MG/24HR
     Route: 062
     Dates: start: 20210615, end: 20210716
  2. CLONIDINE HYDROCHLORIDE [Suspect]
     Active Substance: CLONIDINE HYDROCHLORIDE
     Indication: Hypertension
     Route: 065
  3. PFIZER-BIONTECH COVID-19 VACCINE [Suspect]
     Active Substance: TOZINAMERAN
     Route: 065

REACTIONS (18)
  - Shoulder operation [Unknown]
  - Dementia [Unknown]
  - Breast cancer [Unknown]
  - Cerebral disorder [Unknown]
  - Knee arthroplasty [Unknown]
  - Dizziness [Not Recovered/Not Resolved]
  - Dry mouth [Not Recovered/Not Resolved]
  - Feeling abnormal [Unknown]
  - Impaired driving ability [Not Recovered/Not Resolved]
  - Bladder disorder [Unknown]
  - Dysuria [Unknown]
  - Bladder pain [Unknown]
  - Hypertension [Unknown]
  - Fear of falling [Not Recovered/Not Resolved]
  - Incorrect product administration duration [Unknown]
  - Drug ineffective [Unknown]
  - Loss of personal independence in daily activities [Not Recovered/Not Resolved]
  - Weight decreased [Unknown]

NARRATIVE: CASE EVENT DATE: 20210101
